FAERS Safety Report 4380430-7 (Version None)
Quarter: 2004Q2

REPORT INFORMATION
  Report Type: 
  Country: None (occurrence: None)
  Receive Date: 20040618
  Receipt Date: 20040608
  Transmission Date: 20050107
  Serious: Yes (Hospitalization)
  Sender: FDA-Public Use
  Company Number: FR-BRISTOL-MYERS SQUIBB COMPANY-12609376

PATIENT
  Age: 73 Year
  Sex: Male

DRUGS (11)
  1. APROVEL TABS 300 MG [Suspect]
     Dosage: STOPPED BETWEEN 08- TO 12-MAR-2004 AND WAS REPLACED BY RAMIPRIL. DISCONTINUED PRIOR TO EVENT.
     Route: 048
     Dates: end: 20040301
  2. LASILIX [Suspect]
     Dosage: WAS RE-INTRODUCED (DATE UNKNOWN) WITH A DECREASED AND PROGRESSIVE POSOLOGY
     Route: 048
     Dates: start: 20040310
  3. TENORMIN [Suspect]
     Route: 048
     Dates: start: 20040301
  4. TRIATEC [Concomitant]
     Dates: start: 20040301
  5. ELISOR [Concomitant]
  6. PLAVIX [Concomitant]
  7. MOPRAL [Concomitant]
  8. HUMALOG [Concomitant]
  9. SPECIAFOLDINE [Concomitant]
  10. TARDYFERON [Concomitant]
  11. RIVOTRIL [Concomitant]

REACTIONS (4)
  - HYPOVOLAEMIC SHOCK [None]
  - LOSS OF CONSCIOUSNESS [None]
  - MALAISE [None]
  - RENAL FAILURE ACUTE [None]
